FAERS Safety Report 26165233 (Version 1)
Quarter: 2025Q4

REPORT INFORMATION
  Report Type: Report from Study
  Country: EU (occurrence: EU)
  Receive Date: 20251216
  Receipt Date: 20251216
  Transmission Date: 20260117
  Serious: Yes (Other)
  Sender: ABBVIE
  Company Number: EU-ABBVIE-6536131

PATIENT
  Sex: Male

DRUGS (1)
  1. FOSCARBIDOPA\FOSLEVODOPA [Suspect]
     Active Substance: FOSCARBIDOPA\FOSLEVODOPA
     Indication: Parkinson^s disease
     Dosage: CR: 0.49ML/H, CRN: 0.45ML/H, CRH: 0.50ML/H, ED: 0.30ML.
     Route: 058
     Dates: start: 20241118

REACTIONS (1)
  - Carpal tunnel syndrome [Recovered/Resolved]
